FAERS Safety Report 15399954 (Version 1)
Quarter: 2018Q3

REPORT INFORMATION
  Report Type: Spontaneous
  Country: US (occurrence: US)
  Receive Date: 20180919
  Receipt Date: 20180919
  Transmission Date: 20181010
  Serious: No
  Sender: FDA-Public Use
  Company Number: US-ASTRAZENECA-2018SF18578

PATIENT
  Sex: Male

DRUGS (1)
  1. MOVANTIK [Suspect]
     Active Substance: NALOXEGOL OXALATE
     Indication: ABDOMINAL DISCOMFORT
     Dosage: UNKNOWN DOSE
     Route: 048

REACTIONS (4)
  - Product use in unapproved indication [Unknown]
  - Intestinal dilatation [Unknown]
  - Intestinal pseudo-obstruction [Unknown]
  - Off label use [Unknown]
